FAERS Safety Report 12304718 (Version 1)
Quarter: 2016Q2

REPORT INFORMATION
  Report Type: Spontaneous
  Country: BR (occurrence: BR)
  Receive Date: 20160426
  Receipt Date: 20160426
  Transmission Date: 20160815
  Serious: Yes (Other)
  Sender: FDA-Public Use
  Company Number: BR-009507513-1604BRA015799

PATIENT
  Sex: Male
  Weight: 95 kg

DRUGS (1)
  1. HYDROCORTISONE. [Suspect]
     Active Substance: HYDROCORTISONE
     Indication: URETHRAL DILATATION
     Dosage: 1 DF, BID
     Route: 061
     Dates: start: 2016, end: 20160418

REACTIONS (2)
  - Off label use [Unknown]
  - Urethral stenosis [Not Recovered/Not Resolved]
